FAERS Safety Report 7971566-X (Version None)
Quarter: 2011Q4

REPORT INFORMATION
  Report Type: 
  Country: None (occurrence: None)
  Receive Date: 20111212
  Receipt Date: 20111209
  Transmission Date: 20120403
  Serious: Yes (Death, Hospitalization)
  Sender: FDA-Public Use
  Company Number: US-B.I. PHARMACEUTICALS,INC./RIDGEFIELD-2011-BP-25145BP

PATIENT
  Sex: Female

DRUGS (2)
  1. COUMADIN [Suspect]
  2. PRADAXA [Suspect]
     Dosage: 150 MG

REACTIONS (2)
  - CARDIAC DISORDER [None]
  - GASTROINTESTINAL HAEMORRHAGE [None]
